FAERS Safety Report 7274526-X (Version None)
Quarter: 2011Q1

REPORT INFORMATION
  Report Type: 
  Country: None (occurrence: None)
  Receive Date: 20110204
  Receipt Date: 20110127
  Transmission Date: 20110831
  Serious: Yes (Hospitalization, Other)
  Sender: FDA-Public Use
  Company Number: US-JNJFOC-20100604182

PATIENT
  Sex: Female

DRUGS (3)
  1. LEVAQUIN [Suspect]
     Indication: SINUSITIS
     Route: 048
  2. LEVAQUIN [Suspect]
     Indication: INFLAMMATION
     Route: 048
  3. PREDNISONE [Suspect]
     Indication: STEROID THERAPY
     Route: 065

REACTIONS (6)
  - PAIN IN EXTREMITY [None]
  - JOINT INJURY [None]
  - NECK PAIN [None]
  - ROTATOR CUFF SYNDROME [None]
  - INCORRECT DRUG ADMINISTRATION DURATION [None]
  - TENDONITIS [None]
